FAERS Safety Report 7465107-3 (Version None)
Quarter: 2011Q2

REPORT INFORMATION
  Report Type: 
  Country: None (occurrence: None)
  Receive Date: 20110509
  Receipt Date: 20110503
  Transmission Date: 20111010
  Serious: Yes (Other)
  Sender: FDA-Public Use
  Company Number: BR-SANOFI-AVENTIS-2011SA027585

PATIENT
  Sex: Female

DRUGS (4)
  1. AMBROXOL HYDROCHLORIDE [Suspect]
     Route: 065
     Dates: start: 20110503, end: 20110503
  2. ALLEGRA D 24 HOUR [Suspect]
     Indication: NASAL CONGESTION
     Route: 065
     Dates: start: 20110503, end: 20110503
  3. ALLEGRA D 24 HOUR [Suspect]
     Route: 065
     Dates: start: 20110503, end: 20110503
  4. ALLEGRA D 24 HOUR [Suspect]
     Indication: PULMONARY CONGESTION
     Route: 065
     Dates: start: 20110503, end: 20110503

REACTIONS (5)
  - CHILLS [None]
  - DIZZINESS [None]
  - HYPERHIDROSIS [None]
  - PANIC DISORDER [None]
  - FEELING HOT [None]
